FAERS Safety Report 9909131 (Version 1)
Quarter: 2014Q1

REPORT INFORMATION
  Report Type: Report from Study
  Country: DE (occurrence: DE)
  Receive Date: 20140219
  Receipt Date: 20140219
  Transmission Date: 20141002
  Serious: Yes (Hospitalization)
  Sender: FDA-Public Use
  Company Number: DE-UCBSA-112352

PATIENT
  Age: 49 Year
  Sex: Female
  Weight: 72 kg

DRUGS (8)
  1. NEUPRO [Suspect]
     Indication: RESTLESS LEGS SYNDROME
     Route: 062
  2. CYMBALTA [Concomitant]
     Indication: DEPRESSION
     Route: 048
  3. LERCANIDIPINE [Concomitant]
     Indication: HYPERTENSION
     Route: 048
  4. BACLOFEN [Concomitant]
     Indication: MULTIPLE SCLEROSIS
     Dosage: }-3 PER DAY
     Route: 048
  5. TILIDIN [Concomitant]
     Indication: PAIN
     Route: 048
  6. TIZANIDIN [Concomitant]
     Indication: MULTIPLE SCLEROSIS
     Dosage: }- 3 PER DAY
     Route: 048
  7. GABAPENTIN [Concomitant]
     Indication: EPILEPSY
     Dosage: }- 3 PER DAY
     Route: 048
  8. FAMPYRA [Concomitant]
     Indication: MULTIPLE SCLEROSIS
     Route: 048

REACTIONS (1)
  - Muscle spasticity [Unknown]
